FAERS Safety Report 7015296-X (Version None)
Quarter: 2010Q3

REPORT INFORMATION
  Report Type: 
  Country: None (occurrence: None)
  Receive Date: 20100927
  Receipt Date: 20100917
  Transmission Date: 20110219
  Serious: Yes (Other)
  Sender: FDA-Public Use
  Company Number: BR-US-EMD SERONO, INC.-7014219

PATIENT
  Sex: Female

DRUGS (4)
  1. REBIF [Suspect]
     Indication: MULTIPLE SCLEROSIS
     Route: 058
     Dates: start: 20040101
  2. ATENOLOL [Concomitant]
  3. HYDROCHLOROTHIAZIDE [Concomitant]
  4. LOSARTAN POTASSIUM [Concomitant]

REACTIONS (7)
  - DIZZINESS [None]
  - EYE PAIN [None]
  - HEADACHE [None]
  - LABYRINTHITIS [None]
  - MALAISE [None]
  - NAUSEA [None]
  - VISION BLURRED [None]
